FAERS Safety Report 22062382 (Version 2)
Quarter: 2023Q1

REPORT INFORMATION
  Report Type: Spontaneous
  Country: US (occurrence: US)
  Receive Date: 20230305
  Receipt Date: 20230313
  Transmission Date: 20230418
  Serious: Yes (Other)
  Sender: FDA-Public Use
  Company Number: US-drreddys-SPO/USA/23/0161728

PATIENT
  Age: 56 Year

DRUGS (1)
  1. ACCUTANE [Suspect]
     Active Substance: ISOTRETINOIN
     Indication: Product used for unknown indication
     Dosage: RMA ISSUE DATE: 09 AUGUST 2022, 01:29:14 PM  27 SEPTEMBER 2022, 07:40:51 PM, 25 OCTOBER 2022, 01:24:

REACTIONS (1)
  - Thyroid cancer [Unknown]
